FAERS Safety Report 4787542-4 (Version None)
Quarter: 2005Q4

REPORT INFORMATION
  Report Type: 
  Country: None (occurrence: None)
  Receive Date: 20051003
  Receipt Date: 20050927
  Transmission Date: 20060501
  Serious: Yes (Hospitalization)
  Sender: FDA-Public Use
  Company Number: 200511645BWH

PATIENT
  Age: 72 Year
  Sex: Female
  Weight: 78.4723 kg

DRUGS (2)
  1. AVELOX [Suspect]
     Indication: ARTHROPOD STING
     Dosage: 400 MG ORAL; INTRAVENOUS
     Route: 042
     Dates: start: 20050801
  2. AVELOX [Suspect]
     Indication: ARTHROPOD STING
     Dosage: 400 MG ORAL; INTRAVENOUS
     Route: 042
     Dates: start: 20050801

REACTIONS (5)
  - CLOSTRIDIAL INFECTION [None]
  - DIFFICULTY IN WALKING [None]
  - ERYTHEMA [None]
  - INFECTION [None]
  - SWELLING [None]
